FAERS Safety Report 20994987 (Version 2)
Quarter: 2022Q3

REPORT INFORMATION
  Report Type: Report from Study
  Country: AT (occurrence: AT)
  Receive Date: 20220622
  Receipt Date: 20220627
  Transmission Date: 20221027
  Serious: Yes (Hospitalization, Other)
  Sender: FDA-Public Use
  Company Number: AT-NOVARTISPH-NVSC2022AT142771

PATIENT
  Age: 75 Year
  Sex: Female

DRUGS (1)
  1. ATORVASTATIN [Suspect]
     Active Substance: ATORVASTATIN
     Indication: Hypocholesterolaemia
     Dosage: 80 MG
     Route: 065

REACTIONS (5)
  - Therapeutic product effect incomplete [Recovered/Resolved]
  - Cerebrovascular accident [Unknown]
  - Hemiparesis [Unknown]
  - Carotid artery stenosis [Unknown]
  - Aphasia [Unknown]
